FAERS Safety Report 5939585-2 (Version None)
Quarter: 2008Q4

REPORT INFORMATION
  Report Type: 
  Country: None (occurrence: None)
  Receive Date: 20081030
  Receipt Date: 20081028
  Transmission Date: 20090506
  Serious: Yes (Life-Threatening)
  Sender: FDA-Public Use
  Company Number: SP02083

PATIENT
  Age: 41 Year
  Sex: Male
  Weight: 89.8122 kg

DRUGS (6)
  1. OSMOPREP [Suspect]
     Indication: COLONOSCOPY
     Dosage: 6 GM, ORAL
     Route: 048
     Dates: start: 20080901, end: 20080901
  2. OSMOPREP [Suspect]
     Indication: PREOPERATIVE CARE
     Dosage: 6 GM, ORAL
     Route: 048
     Dates: start: 20080901, end: 20080901
  3. ZOLPIDEM TARTRATE [Concomitant]
  4. CHOLESTYRAMINE [Concomitant]
  5. ZINC [Concomitant]
  6. MAGNESIUM SULFATE [Concomitant]

REACTIONS (4)
  - FACE OEDEMA [None]
  - FEELING ABNORMAL [None]
  - PHARYNGEAL OEDEMA [None]
  - URTICARIA [None]
